FAERS Safety Report 15869833 (Version 1)
Quarter: 2019Q1

REPORT INFORMATION
  Report Type: Spontaneous
  Country: DE (occurrence: DE)
  Receive Date: 20190125
  Receipt Date: 20190125
  Transmission Date: 20190417
  Serious: Yes (Hospitalization, Other)
  Sender: FDA-Public Use
  Company Number: PHHY2019DE014849

PATIENT
  Age: 68 Year
  Sex: Female

DRUGS (10)
  1. ULTIBRO BREEZHALER [Concomitant]
     Active Substance: GLYCOPYRRONIUM\INDACATEROL
     Indication: PRODUCT USED FOR UNKNOWN INDICATION
     Dosage: DAUERMEDIKATION
     Route: 065
  2. ASPIRIN. [Concomitant]
     Active Substance: ASPIRIN
     Indication: PRODUCT USED FOR UNKNOWN INDICATION
     Dosage: DAUERMEDIKATION
     Route: 065
  3. PARACETAMOL [Concomitant]
     Active Substance: ACETAMINOPHEN
     Indication: DENTAL OPERATION
     Dosage: TAGESDOSIS: 2000
     Route: 048
  4. AMOXICLAV [Suspect]
     Active Substance: AMOXICILLIN\CLAVULANATE POTASSIUM
     Indication: DENTAL OPERATION
     Dosage: 1 DF(UG/LITRE), Q8H
     Route: 048
     Dates: start: 20181019
  5. BUDIAIR [Concomitant]
     Active Substance: BUDESONIDE
     Indication: PRODUCT USED FOR UNKNOWN INDICATION
     Dosage: DAUERMEDIKATION
     Route: 065
  6. PREDNISOLON [Concomitant]
     Active Substance: PREDNISOLONE
     Indication: DENTAL OPERATION
     Dosage: 80 MG, QD
     Route: 065
     Dates: start: 20181019
  7. AMLODIPIN [Concomitant]
     Active Substance: AMLODIPINE BESYLATE
     Indication: PRODUCT USED FOR UNKNOWN INDICATION
     Dosage: DAUERMEDIKATION
     Route: 065
  8. EPROSARTAN [Concomitant]
     Active Substance: EPROSARTAN
     Indication: PRODUCT USED FOR UNKNOWN INDICATION
     Dosage: DAUERMEDIKATION
     Route: 065
  9. BISOPROLOL [Concomitant]
     Active Substance: BISOPROLOL
     Indication: PRODUCT USED FOR UNKNOWN INDICATION
     Dosage: DAUERMEDIKATION
     Route: 065
  10. PREDNISOLON [Concomitant]
     Active Substance: PREDNISOLONE
     Dosage: 80 MG, QD
     Route: 065
     Dates: start: 20181022

REACTIONS (1)
  - Drug-induced liver injury [Not Recovered/Not Resolved]

NARRATIVE: CASE EVENT DATE: 20181215
